FAERS Safety Report 6577110-6 (Version None)
Quarter: 2010Q1

REPORT INFORMATION
  Report Type: 
  Country: None (occurrence: None)
  Receive Date: 20100210
  Receipt Date: 20100129
  Transmission Date: 20100710
  Serious: Yes (Hospitalization)
  Sender: FDA-Public Use
  Company Number: US-ELI_LILLY_AND_COMPANY-US201001000229

PATIENT
  Sex: Male

DRUGS (4)
  1. BYETTA [Suspect]
     Dosage: 5 UG, 2/D
     Dates: start: 20080813, end: 20080831
  2. GLUCOPHAGE [Concomitant]
  3. GLYBURIDE [Concomitant]
  4. NPH INSULIN [Concomitant]

REACTIONS (2)
  - OFF LABEL USE [None]
  - URTICARIA [None]
